FAERS Safety Report 26130365 (Version 1)
Quarter: 2025Q4

REPORT INFORMATION
  Report Type: Spontaneous
  Country: US (occurrence: None)
  Receive Date: 20251205
  Receipt Date: 20251205
  Transmission Date: 20260117
  Serious: Yes (Life-Threatening)
  Sender: FDA-CTU
  Company Number: None

PATIENT
  Age: 64 Year
  Sex: Female
  Weight: 73 kg

DRUGS (2)
  1. MIRCERA [Suspect]
     Active Substance: METHOXY POLYETHYLENE GLYCOL-EPOETIN BETA
     Indication: Anaemia
     Dosage: 225 UG MICROGRAM(S) EVERY 2 WEEKS INTRAVENOUS
     Route: 042
     Dates: start: 20251121, end: 20251205
  2. MIRCERA [Suspect]
     Active Substance: METHOXY POLYETHYLENE GLYCOL-EPOETIN BETA
     Indication: Renal disorder

REACTIONS (3)
  - Dyspnoea [None]
  - Wheezing [None]
  - Anaphylactic reaction [None]

NARRATIVE: CASE EVENT DATE: 20251205
